FAERS Safety Report 7613130-8 (Version None)
Quarter: 2011Q3

REPORT INFORMATION
  Report Type: 
  Country: None (occurrence: None)
  Receive Date: 20110713
  Receipt Date: 20110526
  Transmission Date: 20111222
  Serious: No
  Sender: FDA-Public Use
  Company Number: US-005458

PATIENT
  Age: 71 Year
  Sex: Male
  Weight: 72.5755 kg

DRUGS (10)
  1. CYMBALTA [Concomitant]
  2. ASPIRIN [Concomitant]
  3. TYLENOL (CAPLET) [Concomitant]
  4. CALCIUM CARBONATE [Concomitant]
  5. FERROUS SULFATE TAB [Concomitant]
  6. PLAVIX [Concomitant]
  7. DEGARELIX (120 MG, 80 MG) [Suspect]
     Indication: PROSTATE CANCER
     Dosage: SEE IMAGE
     Route: 058
     Dates: start: 20110330, end: 20110401
  8. DEGARELIX (120 MG, 80 MG) [Suspect]
     Indication: PROSTATE CANCER
     Dosage: SEE IMAGE
     Route: 058
     Dates: start: 20110427
  9. INDOCIN /00003801/ [Concomitant]
  10. VITAMIN A [Concomitant]

REACTIONS (4)
  - INJECTION SITE PAIN [None]
  - INAPPROPRIATE SCHEDULE OF DRUG ADMINISTRATION [None]
  - INJECTION SITE ERYTHEMA [None]
  - INJECTION SITE MASS [None]
